FAERS Safety Report 21096921 (Version 1)
Quarter: 2022Q3

REPORT INFORMATION
  Report Type: Spontaneous
  Country: US (occurrence: US)
  Receive Date: 20220718
  Receipt Date: 20220718
  Transmission Date: 20221026
  Serious: No
  Sender: FDA-Public Use
  Company Number: US-BRISTOL-MYERS SQUIBB COMPANY-BMS-2022-039328

PATIENT
  Age: 74 Year
  Sex: Female
  Weight: 80.739 kg

DRUGS (1)
  1. ELIQUIS [Suspect]
     Active Substance: APIXABAN
     Indication: Pulmonary embolism
     Dosage: UNAVAILABLE (NOT PROVIDED)
     Route: 048
     Dates: start: 202111

REACTIONS (3)
  - Muscle discomfort [Unknown]
  - Insomnia [Unknown]
  - Renal disorder [Unknown]

NARRATIVE: CASE EVENT DATE: 20220302
